FAERS Safety Report 7422698-6 (Version None)
Quarter: 2011Q2

REPORT INFORMATION
  Report Type: 
  Country: None (occurrence: None)
  Receive Date: 20110419
  Receipt Date: 20110411
  Transmission Date: 20111010
  Serious: Yes (Other)
  Sender: FDA-Public Use
  Company Number: CA-TEVA-276371USA

PATIENT
  Age: 79 Year
  Sex: Female

DRUGS (1)
  1. CLINDAMYCIN HCL [Suspect]
     Dosage: 1 EVERY 6 HOUR(S)

REACTIONS (3)
  - ACQUIRED MACROGLOSSIA [None]
  - DYSPHAGIA [None]
  - MALAISE [None]
